FAERS Safety Report 6658188-8 (Version None)
Quarter: 2010Q1

REPORT INFORMATION
  Report Type: 
  Country: None (occurrence: None)
  Receive Date: 20100330
  Receipt Date: 20100324
  Transmission Date: 20100710
  Serious: Yes (Other)
  Sender: FDA-Public Use
  Company Number: B0643728A

PATIENT
  Age: 46 Year
  Sex: Male

DRUGS (1)
  1. AMOXIL [Suspect]
     Indication: RESPIRATORY TRACT INFECTION
     Dosage: 1G TWICE PER DAY
     Route: 048
     Dates: start: 20100220, end: 20100226

REACTIONS (1)
  - HEPATIC ENZYME INCREASED [None]
